FAERS Safety Report 10765107 (Version 1)
Quarter: 2015Q1

REPORT INFORMATION
  Report Type: Spontaneous
  Country: US (occurrence: None)
  Receive Date: 20150204
  Receipt Date: 20150204
  Transmission Date: 20150721
  Serious: Yes (Disabling)
  Sender: FDA-Public Use
  Company Number: None

PATIENT
  Age: 52 Year
  Sex: Female
  Weight: 87.09 kg

DRUGS (2)
  1. VIIBRYD [Suspect]
     Active Substance: VILAZODONE HYDROCHLORIDE
     Indication: ANXIETY
     Dosage: ONE PILL ONCE DAILY TAKEN BY MOUTH?ABOUT 2 -2 1/2 MONTHS
     Route: 048
  2. VIIBRYD [Suspect]
     Active Substance: VILAZODONE HYDROCHLORIDE
     Indication: DEPRESSION
     Dosage: ONE PILL ONCE DAILY TAKEN BY MOUTH?ABOUT 2 -2 1/2 MONTHS
     Route: 048

REACTIONS (9)
  - Anger [None]
  - Loss of dreaming [None]
  - Pain [None]
  - Fatigue [None]
  - Sleep disorder [None]
  - Insomnia [None]
  - Drug effect decreased [None]
  - Crying [None]
  - Irritability [None]

NARRATIVE: CASE EVENT DATE: 20150203
